FAERS Safety Report 20574103 (Version 5)
Quarter: 2022Q2

REPORT INFORMATION
  Report Type: Spontaneous
  Country: US (occurrence: US)
  Receive Date: 20220309
  Receipt Date: 20220630
  Transmission Date: 20220721
  Serious: Yes (Hospitalization, Other)
  Sender: FDA-Public Use
  Company Number: US-PFIZER INC-202200146836

PATIENT
  Age: 82 Year
  Sex: Male

DRUGS (4)
  1. XELJANZ [Suspect]
     Active Substance: TOFACITINIB CITRATE
     Indication: Colitis ulcerative
     Dosage: 10 MG, 1X/DAY
     Route: 048
     Dates: start: 20220114
  2. XELJANZ [Suspect]
     Active Substance: TOFACITINIB CITRATE
     Dosage: 10 MG, 2X/DAY
     Route: 048
     Dates: start: 20220114, end: 20220507
  3. XELJANZ [Suspect]
     Active Substance: TOFACITINIB CITRATE
     Dosage: 10 MG, 2X/DAY
     Route: 048
     Dates: start: 202203
  4. XELJANZ [Suspect]
     Active Substance: TOFACITINIB CITRATE
     Dosage: 5 MG, 2X/DAY
     Route: 048
     Dates: start: 202203

REACTIONS (16)
  - Anaemia [Unknown]
  - Asthenia [Unknown]
  - Cytomegalovirus infection [Unknown]
  - Colectomy [Unknown]
  - Intestinal obstruction [Unknown]
  - Pneumonia [Unknown]
  - Ileostomy [Recovered/Resolved]
  - Haematochezia [Not Recovered/Not Resolved]
  - Off label use [Unknown]
  - Intentional product misuse [Unknown]
  - Fall [Unknown]
  - Mobility decreased [Unknown]
  - Pain [Unknown]
  - Pyrexia [Recovered/Resolved]
  - Fluid retention [Unknown]
  - Infection [Unknown]

NARRATIVE: CASE EVENT DATE: 20220101
